FAERS Safety Report 19215392 (Version 2)
Quarter: 2022Q2

REPORT INFORMATION
  Report Type: Spontaneous
  Country: FR (occurrence: FR)
  Receive Date: 20210505
  Receipt Date: 20220419
  Transmission Date: 20220721
  Serious: Yes (Other)
  Sender: FDA-Public Use
  Company Number: FR-KYOWAKIRIN-2021BKK006939

PATIENT

DRUGS (2)
  1. POTELIGEO [Suspect]
     Active Substance: MOGAMULIZUMAB-KPKC
     Indication: Cutaneous T-cell lymphoma stage IV
     Dosage: UNK
     Route: 065
     Dates: start: 201906, end: 2019
  2. BEXAROTENE [Concomitant]
     Active Substance: BEXAROTENE
     Indication: Cutaneous T-cell lymphoma stage IV
     Dosage: UNK
     Route: 065
     Dates: start: 2019

REACTIONS (2)
  - Hepatic cytolysis [Recovered/Resolved]
  - Vitiligo [Unknown]

NARRATIVE: CASE EVENT DATE: 20190101
